FAERS Safety Report 10589485 (Version 1)
Quarter: 2014Q4

REPORT INFORMATION
  Report Type: Spontaneous
  Country: SG (occurrence: None)
  Receive Date: 20141114
  Receipt Date: 20141114
  Transmission Date: 20150529
  Serious: Yes (Other)
  Sender: FDA-Public Use
  Company Number: SG-ZYDUS-005497

PATIENT
  Age: 14 Year
  Sex: Female

DRUGS (1)
  1. LOSARTAN (LOSARTAN) [Suspect]
     Active Substance: LOSARTAN

REACTIONS (3)
  - Systemic lupus erythematosus [None]
  - Disease progression [None]
  - Liver disorder [None]
